FAERS Safety Report 6011682-5 (Version None)
Quarter: 2008Q4

REPORT INFORMATION
  Report Type: 
  Country: None (occurrence: None)
  Receive Date: 20081217
  Receipt Date: 20081217
  Transmission Date: 20090506
  Serious: Yes (Other)
  Sender: FDA-Public Use
  Company Number: None

PATIENT
  Age: 53 Year
  Sex: Female
  Weight: 95.2554 kg

DRUGS (2)
  1. VERSED [Suspect]
     Indication: SURGERY
     Dosage: ONCE IV DRIP
     Route: 041
     Dates: start: 19980101, end: 19980101
  2. VERSED [Suspect]
     Indication: SURGERY
     Dosage: ONCE IV DRIP
     Route: 041
     Dates: start: 20081023, end: 20081023

REACTIONS (2)
  - PANIC ATTACK [None]
  - THERAPEUTIC RESPONSE UNEXPECTED [None]
